FAERS Safety Report 5690765-3 (Version None)
Quarter: 2008Q2

REPORT INFORMATION
  Report Type: 
  Country: None (occurrence: None)
  Receive Date: 20080401
  Receipt Date: 20080324
  Transmission Date: 20081010
  Serious: Yes (Death, Hospitalization)
  Sender: FDA-Public Use
  Company Number: A0700365A

PATIENT
  Age: 68 Year
  Sex: Male

DRUGS (2)
  1. AVODART [Suspect]
     Route: 048
     Dates: start: 20071025
  2. UROXATRAL [Concomitant]
     Dates: start: 20071025

REACTIONS (12)
  - ALPHA-1 ANTI-TRYPSIN INCREASED [None]
  - BRONCHIOLITIS [None]
  - CHRONIC OBSTRUCTIVE PULMONARY DISEASE [None]
  - DIZZINESS [None]
  - DYSPNOEA [None]
  - DYSPNOEA EXERTIONAL [None]
  - LUNG INFILTRATION [None]
  - LUNG INJURY [None]
  - MYCOPLASMA INFECTION [None]
  - RALES [None]
  - RESPIRATORY DISTRESS [None]
  - RESPIRATORY FAILURE [None]
